FAERS Safety Report 4437300-5 (Version None)
Quarter: 2004Q3

REPORT INFORMATION
  Report Type: 
  Country: None (occurrence: None)
  Receive Date: 20040726
  Receipt Date: 20040330
  Transmission Date: 20050211
  Serious: No
  Sender: FDA-Public Use
  Company Number: USA040363478

PATIENT
  Age: 70 Year
  Sex: Female
  Weight: 66 kg

DRUGS (7)
  1. FORTEO [Suspect]
     Indication: BONE DENSITY DECREASED
     Dosage: 20 UG/1 DAY
     Dates: start: 20030401
  2. FOSAMAX [Concomitant]
  3. LISINOPRIL [Concomitant]
  4. MULTI-VITAMIN [Concomitant]
  5. CALCIUM WITH VITAMIN D [Concomitant]
  6. FIBERCON (POLYCARBOPHIL CALCIUM) [Concomitant]
  7. LORAZEPAM [Concomitant]

REACTIONS (5)
  - ANXIETY [None]
  - INJECTION SITE HAEMORRHAGE [None]
  - INJECTION SITE NODULE [None]
  - MEDICATION ERROR [None]
  - RASH PRURITIC [None]
